FAERS Safety Report 7289253-2 (Version None)
Quarter: 2011Q1

REPORT INFORMATION
  Report Type: 
  Country: None (occurrence: None)
  Receive Date: 20110211
  Receipt Date: 20110201
  Transmission Date: 20110831
  Serious: Yes (Hospitalization, Other)
  Sender: FDA-Public Use
  Company Number: PHHY2011US09007

PATIENT
  Sex: Male

DRUGS (2)
  1. FANAPT [Suspect]
     Indication: SCHIZOPHRENIA
     Dosage: 8-12 MG, BID
     Route: 048
     Dates: start: 20101109, end: 20110201
  2. THORAZINE [Suspect]
     Dosage: 100 MG, PRN

REACTIONS (3)
  - EJACULATION FAILURE [None]
  - BLOOD THYROID STIMULATING HORMONE INCREASED [None]
  - BLOOD PROLACTIN INCREASED [None]
